FAERS Safety Report 14680306 (Version 1)
Quarter: 2018Q1

REPORT INFORMATION
  Report Type: Spontaneous
  Country: US (occurrence: US)
  Receive Date: 20180324
  Receipt Date: 20180324
  Transmission Date: 20180509
  Serious: No
  Sender: FDA-Public Use
  Company Number: None

PATIENT
  Age: 64 Year
  Sex: Female

DRUGS (26)
  1. MUCINEX [Concomitant]
     Active Substance: GUAIFENESIN
  2. RHINOCORT [Concomitant]
     Active Substance: BUDESONIDE
  3. AMLOD/ATORVA [Concomitant]
  4. FAMOTIDINE. [Concomitant]
     Active Substance: FAMOTIDINE
  5. LISINOPRIL. [Concomitant]
     Active Substance: LISINOPRIL
  6. RESTASIS [Concomitant]
     Active Substance: CYCLOSPORINE
  7. OCALIVA [Suspect]
     Active Substance: OBETICHOLIC ACID
     Indication: PRIMARY BILIARY CHOLANGITIS
     Route: 048
     Dates: start: 20180223
  8. GABAPENTIN. [Concomitant]
     Active Substance: GABAPENTIN
  9. NEXIUM [Concomitant]
     Active Substance: ESOMEPRAZOLE MAGNESIUM
  10. URSODIOL. [Concomitant]
     Active Substance: URSODIOL
  11. OMEPRAZOLE. [Concomitant]
     Active Substance: OMEPRAZOLE
  12. SERTRALINE [Concomitant]
     Active Substance: SERTRALINE HYDROCHLORIDE
  13. SULFASALAZINE DELAYED-RELEASE [Concomitant]
     Active Substance: SULFASALAZINE
  14. VIACTIV [Concomitant]
     Active Substance: CALCIUM\VITAMIN D\VITAMIN K5
  15. VITAMIN D3 [Concomitant]
     Active Substance: CHOLECALCIFEROL
  16. FISH OIL [Concomitant]
     Active Substance: FISH OIL
  17. OXYCODONE [Concomitant]
     Active Substance: OXYCODONE
  18. CEVIMELINE. [Concomitant]
     Active Substance: CEVIMELINE
  19. ZYRTEC [Concomitant]
     Active Substance: CETIRIZINE HYDROCHLORIDE
  20. ALBUTEROL. [Concomitant]
     Active Substance: ALBUTEROL
  21. MAGNESIUM [Concomitant]
     Active Substance: MAGNESIUM
  22. NABUMETONE. [Concomitant]
     Active Substance: NABUMETONE
  23. PLAQUENIL [Concomitant]
     Active Substance: HYDROXYCHLOROQUINE SULFATE
  24. CALCIUM/D [Concomitant]
  25. ENBREL [Concomitant]
     Active Substance: ETANERCEPT
  26. LUTEIN [Concomitant]
     Active Substance: LUTEIN

REACTIONS (1)
  - Fatigue [None]

NARRATIVE: CASE EVENT DATE: 201802
